FAERS Safety Report 22342099 (Version 1)
Quarter: 2023Q2

REPORT INFORMATION
  Report Type: Spontaneous
  Country: US (occurrence: US)
  Receive Date: 20230519
  Receipt Date: 20230519
  Transmission Date: 20230722
  Serious: Yes (Death)
  Sender: FDA-Public Use
  Company Number: US-SLATE RUN PHARMACEUTICALS-23US001593

PATIENT

DRUGS (13)
  1. VANCOMYCIN HYDROCHLORIDE [Suspect]
     Active Substance: VANCOMYCIN HYDROCHLORIDE
     Indication: Antibiotic therapy
     Dosage: UNK
     Route: 042
  2. VORICONAZOLE [Suspect]
     Active Substance: VORICONAZOLE
     Indication: Trichosporon infection
     Dosage: 0.06 MICROGRAM PER MILLILITRE
     Route: 042
  3. CEFEPIME [Suspect]
     Active Substance: CEFEPIME HYDROCHLORIDE
     Indication: Antibiotic therapy
     Dosage: UNK
     Route: 042
  4. METRONIDAZOLE [Suspect]
     Active Substance: METRONIDAZOLE
     Indication: Antibiotic therapy
     Route: 042
  5. MICAFUNGIN [Suspect]
     Active Substance: MICAFUNGIN SODIUM
     Indication: Antibiotic therapy
     Route: 042
  6. AMPHOTERICIN B [Suspect]
     Active Substance: AMPHOTERICIN B
     Indication: Trichosporon infection
     Dosage: 0.5 MICROGRAM PER MILLILITRE
     Route: 042
  7. CASPOFUNGIN [Suspect]
     Active Substance: CASPOFUNGIN
     Indication: Trichosporon infection
     Dosage: }8 MICROGRAM PER MILLILITRE
     Route: 042
  8. FLUCONAZOLE [Suspect]
     Active Substance: FLUCONAZOLE
     Indication: Trichosporon infection
     Dosage: 1 MICROGRAM PER MILLILITRE
     Route: 042
  9. POSACONAZOLE [Suspect]
     Active Substance: POSACONAZOLE
     Indication: Trichosporon infection
     Dosage: 0.125 MICROGRAM PER MILLILITRE
     Route: 042
  10. ITRACONAZOLE [Suspect]
     Active Substance: ITRACONAZOLE
     Indication: Trichosporon infection
     Dosage: 0.5 MICROGRAM PER MILLILITRE
  11. REMDESIVIR [Suspect]
     Active Substance: REMDESIVIR
     Indication: Product used for unknown indication
     Dosage: UNK
     Route: 042
  12. DEXAMETHASONE [Suspect]
     Active Substance: DEXAMETHASONE
     Indication: Product used for unknown indication
     Dosage: UNK
     Route: 042
  13. TOCILIZUMAB [Suspect]
     Active Substance: TOCILIZUMAB
     Indication: Product used for unknown indication
     Dosage: 400 MILLIGRAM, SINGLE
     Route: 042

REACTIONS (4)
  - Pulmonary trichosporonosis [Fatal]
  - Leukaemoid reaction [Fatal]
  - Oxygen saturation decreased [Fatal]
  - Pulmonary cavitation [Fatal]
